FAERS Safety Report 16372048 (Version 2)
Quarter: 2019Q2

REPORT INFORMATION
  Report Type: Spontaneous
  Country: US (occurrence: US)
  Receive Date: 20190530
  Receipt Date: 20190621
  Transmission Date: 20190711
  Serious: No
  Sender: FDA-Public Use
  Company Number: US-ASTRAZENECA-2019SE68367

PATIENT
  Sex: Female

DRUGS (3)
  1. PROAIR HFA [Concomitant]
     Active Substance: ALBUTEROL SULFATE
  2. ADVAIR HFA [Concomitant]
     Active Substance: FLUTICASONE PROPIONATE\SALMETEROL XINAFOATE
  3. SYMBICORT [Suspect]
     Active Substance: BUDESONIDE\FORMOTEROL FUMARATE DIHYDRATE
     Dosage: 160/4.5 MCG, 2 PUFFS TWICE A DAY
     Route: 055
     Dates: start: 20180907

REACTIONS (6)
  - Device malfunction [Unknown]
  - Lung disorder [Recovered/Resolved]
  - Asthma [Unknown]
  - Device failure [Unknown]
  - Stress [Not Recovered/Not Resolved]
  - Intentional device misuse [Unknown]
